FAERS Safety Report 5760959-7 (Version None)
Quarter: 2008Q2

REPORT INFORMATION
  Report Type: 
  Country: None (occurrence: None)
  Receive Date: 20080606
  Receipt Date: 20070322
  Transmission Date: 20081010
  Serious: No
  Sender: FDA-Public Use
  Company Number: US-ASTRAZENECA-2007UW05624

PATIENT
  Age: 6 Month
  Sex: Male

DRUGS (1)
  1. PRILOSEC [Suspect]
     Dosage: 1 MG/KG Q 24 HOURS
     Route: 048
     Dates: start: 20070315

REACTIONS (1)
  - FAECES DISCOLOURED [None]
